FAERS Safety Report 15062501 (Version 1)
Quarter: 2018Q2

REPORT INFORMATION
  Report Type: Spontaneous
  Country: US (occurrence: US)
  Receive Date: 20180625
  Receipt Date: 20180625
  Transmission Date: 20180711
  Serious: No
  Sender: FDA-Public Use
  Company Number: US-AMGEN-USASP2012000568

PATIENT
  Age: 51 Year
  Sex: Male

DRUGS (9)
  1. IRON [Concomitant]
     Active Substance: IRON
  2. SENSIPAR [Suspect]
     Active Substance: CINACALCET HYDROCHLORIDE
     Indication: DIALYSIS
     Dosage: 30 MG, QD
     Dates: start: 201112, end: 20120102
  3. ASPIRIN. [Concomitant]
     Active Substance: ASPIRIN
  4. HECTOROL [Concomitant]
     Active Substance: DOXERCALCIFEROL
  5. SEVELAMER [Concomitant]
     Active Substance: SEVELAMER
  6. SIMVASTATIN. [Concomitant]
     Active Substance: SIMVASTATIN
  7. COLCHICINE. [Concomitant]
     Active Substance: COLCHICINE
     Dosage: UNK
  8. KEPPRA [Concomitant]
     Active Substance: LEVETIRACETAM
  9. PLAVIX [Concomitant]
     Active Substance: CLOPIDOGREL BISULFATE

REACTIONS (1)
  - Gout [Recovering/Resolving]

NARRATIVE: CASE EVENT DATE: 201112
